FAERS Safety Report 18997278 (Version 2)
Quarter: 2021Q1

REPORT INFORMATION
  Report Type: Report from Study
  Country: US (occurrence: US)
  Receive Date: 20210311
  Receipt Date: 20210324
  Transmission Date: 20210420
  Serious: No
  Sender: FDA-Public Use
  Company Number: NVSC2021US049514

PATIENT
  Sex: Male

DRUGS (1)
  1. COSENTYX [Suspect]
     Active Substance: SECUKINUMAB
     Indication: PRODUCT USED FOR UNKNOWN INDICATION
     Dosage: UNK UNK, UNKNOWN
     Route: 065

REACTIONS (7)
  - Hypertension [Unknown]
  - Migraine [Unknown]
  - Illness [Unknown]
  - Inflammation [Unknown]
  - Cardiac disorder [Unknown]
  - COVID-19 [Unknown]
  - Lung disorder [Unknown]
